FAERS Safety Report 7218419-2 (Version None)
Quarter: 2011Q1

REPORT INFORMATION
  Report Type: 
  Country: None (occurrence: None)
  Receive Date: 20110110
  Receipt Date: 20110104
  Transmission Date: 20110831
  Serious: Yes (Other)
  Sender: FDA-Public Use
  Company Number: FR-PFIZER INC-2011002141

PATIENT
  Age: 39 Year
  Sex: Male

DRUGS (1)
  1. CHAMPIX [Suspect]
     Dosage: UNK
     Dates: start: 20100101

REACTIONS (9)
  - OROPHARYNGEAL PAIN [None]
  - ERYTHEMA [None]
  - SLEEP DISORDER [None]
  - GASTROINTESTINAL DISORDER [None]
  - HEADACHE [None]
  - EYE SWELLING [None]
  - EAR PAIN [None]
  - FATIGUE [None]
  - MUSCULOSKELETAL PAIN [None]
